FAERS Safety Report 21025511 (Version 1)
Quarter: 2022Q2

REPORT INFORMATION
  Report Type: Spontaneous
  Country: ES (occurrence: None)
  Receive Date: 20220630
  Receipt Date: 20220630
  Transmission Date: 20220720
  Serious: Yes (Hospitalization)
  Sender: FDA-Public Use
  Company Number: ES-ROCHE-3124376

PATIENT
  Age: 31 Year
  Sex: Female

DRUGS (4)
  1. CAPECITABINE [Suspect]
     Active Substance: CAPECITABINE
     Indication: Product used for unknown indication
     Route: 065
  2. PACLITAXEL [Concomitant]
     Active Substance: PACLITAXEL
  3. CARBOPLATIN [Concomitant]
     Active Substance: CARBOPLATIN
  4. ERIBULIN [Concomitant]
     Active Substance: ERIBULIN

REACTIONS (3)
  - Gastrointestinal toxicity [Unknown]
  - Skin toxicity [Unknown]
  - Haematotoxicity [Unknown]
